FAERS Safety Report 9698315 (Version 5)
Quarter: 2015Q2

REPORT INFORMATION
  Report Type: Spontaneous
  Country: US (occurrence: US)
  Receive Date: 20131120
  Receipt Date: 20150601
  Transmission Date: 20150821
  Serious: Yes (Life-Threatening, Hospitalization)
  Sender: FDA-Public Use
  Company Number: US-BAYER-2013-140165

PATIENT
  Age: 32 Year
  Sex: Female
  Weight: 52 kg

DRUGS (6)
  1. ALPRAZOLAM. [Concomitant]
     Active Substance: ALPRAZOLAM
     Dosage: 0.25 MG, TID
  2. PAXIL [Concomitant]
     Active Substance: PAROXETINE HYDROCHLORIDE
     Dosage: 40 MG, ONCE
  3. VITAMIN D3 [Concomitant]
     Active Substance: CHOLECALCIFEROL
     Dosage: 2000 IU, ONCE
  4. NIACIN. [Concomitant]
     Active Substance: NIACIN
     Dosage: 500 MG, ONCE
  5. MIRENA [Suspect]
     Active Substance: LEVONORGESTREL
     Indication: CONTRACEPTION
     Dosage: 20 MCG/24HR, CONT
     Route: 015
     Dates: start: 20090529, end: 20121115
  6. HYDROXYZINE PAMOATE. [Concomitant]
     Active Substance: HYDROXYZINE PAMOATE
     Dosage: 50 MG, TID

REACTIONS (16)
  - Cyst [None]
  - Psychogenic seizure [Not Recovered/Not Resolved]
  - Abdominal pain lower [Not Recovered/Not Resolved]
  - Device issue [None]
  - General physical health deterioration [Not Recovered/Not Resolved]
  - Endometriosis [None]
  - Injury [Not Recovered/Not Resolved]
  - Anhedonia [None]
  - Pelvic inflammatory disease [None]
  - Dyspareunia [None]
  - Uterine perforation [Not Recovered/Not Resolved]
  - Anxiety [None]
  - Pelvic pain [Not Recovered/Not Resolved]
  - Pain [Not Recovered/Not Resolved]
  - Abdominal pain upper [Not Recovered/Not Resolved]
  - Emotional distress [None]

NARRATIVE: CASE EVENT DATE: 2012
